FAERS Safety Report 14829899 (Version 3)
Quarter: 2018Q2

REPORT INFORMATION
  Report Type: Spontaneous
  Country: DK (occurrence: DK)
  Receive Date: 20180430
  Receipt Date: 20180530
  Transmission Date: 20180711
  Serious: Yes (Death)
  Sender: FDA-Public Use
  Company Number: DK-PFIZER INC-2018171359

PATIENT
  Sex: Female

DRUGS (1)
  1. METHOTREXATE. [Suspect]
     Active Substance: METHOTREXATE
     Indication: ARTHRITIS
     Dosage: WEEKLY DOSES GIVEN DAILY
     Dates: start: 2004, end: 2004

REACTIONS (2)
  - Toxicity to various agents [Fatal]
  - Inappropriate schedule of drug administration [Fatal]

NARRATIVE: CASE EVENT DATE: 2004
